FAERS Safety Report 7231663-3 (Version None)
Quarter: 2011Q1

REPORT INFORMATION
  Report Type: 
  Country: None (occurrence: None)
  Receive Date: 20110118
  Receipt Date: 20110107
  Transmission Date: 20110831
  Serious: Yes (Other)
  Sender: FDA-Public Use
  Company Number: PHEH2007US13316

PATIENT
  Sex: Male

DRUGS (34)
  1. REVLIMID [Concomitant]
     Dosage: 25 MG, QD
  2. CYTOXAN [Concomitant]
  3. IBUPROFEN [Concomitant]
     Dosage: AS NEEDED
  4. ZOMETA [Suspect]
     Indication: METASTASES TO BONE
     Dosage: UNK
     Dates: end: 20060101
  5. MEGACE [Concomitant]
     Dosage: 40 MG BID 3/4
     Dates: start: 20051108, end: 20060206
  6. PERCOCET [Concomitant]
     Indication: PAIN
     Dosage: 5 / 325 QID PRN
  7. NEURONTIN [Concomitant]
  8. DECADRON [Concomitant]
     Dosage: 40 MG, UNK
     Dates: start: 20020101, end: 20070801
  9. VINCRISTINE + ADRIAMYCIN + DEXAMETHASONE [Concomitant]
     Dosage: UNK
     Dates: end: 20020101
  10. EFFEXOR [Concomitant]
  11. DURAGESIC-100 [Concomitant]
  12. CASODEX [Concomitant]
     Dosage: 50 MG 3/4
     Dates: start: 20050517, end: 20050823
  13. ZOLADEX [Concomitant]
     Dosage: 10.8 MG, UNK
  14. MEGACE [Concomitant]
     Dosage: 40 MG BID 4/6
     Dates: start: 20050406, end: 20051108
  15. AREDIA [Suspect]
     Dosage: UNK
     Dates: start: 20020101, end: 20040501
  16. ANTIBIOTICS [Concomitant]
  17. OXYCODONE HCL AND ACETAMINOPHEN [Concomitant]
     Dosage: 5 MG-325 MG
     Route: 048
     Dates: start: 20050617, end: 20060414
  18. LISINOPRIL [Concomitant]
     Dosage: 20 MG 0/4
     Dates: start: 20051107, end: 20060228
  19. MOTRIN [Concomitant]
     Dosage: 600 MG 1 QID PRN
  20. LUPRON [Concomitant]
  21. ORAMORPH SR [Concomitant]
  22. FENTANYL [Concomitant]
     Dosage: 50 UG, UNK
     Dates: start: 20050617, end: 20060414
  23. CASODEX [Concomitant]
     Dosage: 50 MG 0/3
     Dates: start: 20051014, end: 20051129
  24. LISINOPRIL [Concomitant]
     Dosage: 20 MG 2/4
     Route: 048
     Dates: start: 20050428, end: 20051107
  25. PERIDEX [Concomitant]
  26. LORTAB [Concomitant]
  27. CASODEX [Concomitant]
     Dosage: 50 MG 1/3
     Dates: start: 20050823, end: 20051014
  28. HYDROCHLOROTHIAZIDE [Concomitant]
     Dosage: 25 MG 4/4
     Dates: start: 20050428, end: 20060421
  29. OXYCONTIN [Concomitant]
  30. AUGMENTIN '125' [Concomitant]
     Dosage: 875 MG, BID
  31. FLUZONE [Concomitant]
     Dosage: 0.5 ML, UNK
  32. FLEXERIL [Concomitant]
     Dosage: AS NEEDED
  33. HYDROCHLOROTHIAZIDE [Concomitant]
     Dosage: 25 MG 3/4
     Dates: start: 20060421, end: 20070421
  34. MEGACE [Concomitant]
     Dosage: 40 MG BID 1/4
     Dates: start: 20060206, end: 20060801

REACTIONS (31)
  - BONE DENSITY DECREASED [None]
  - BONE PAIN [None]
  - MUSCULOSKELETAL PAIN [None]
  - BONE DISORDER [None]
  - PRIMARY SEQUESTRUM [None]
  - INSOMNIA [None]
  - DIVERTICULUM [None]
  - COMPRESSION FRACTURE [None]
  - DEFORMITY [None]
  - ERECTILE DYSFUNCTION [None]
  - POOR QUALITY SLEEP [None]
  - POLLAKIURIA [None]
  - LUNG NEOPLASM [None]
  - SKIN SWELLING [None]
  - OSTEONECROSIS OF JAW [None]
  - PROSTATE CANCER METASTATIC [None]
  - NEPHROLITHIASIS [None]
  - HAEMATOCHEZIA [None]
  - CONSTIPATION [None]
  - HYPERTENSION [None]
  - CELLULITIS [None]
  - ERYTHEMA [None]
  - MUSCLE SWELLING [None]
  - PAIN IN JAW [None]
  - INFECTION [None]
  - EMPHYSEMA [None]
  - ANAEMIA [None]
  - TENDERNESS [None]
  - KYPHOSIS [None]
  - BACK PAIN [None]
  - AXILLARY PAIN [None]
